APPROVED DRUG PRODUCT: ISOTRETINOIN
Active Ingredient: ISOTRETINOIN
Strength: 20MG
Dosage Form/Route: CAPSULE;ORAL
Application: A212333 | Product #002 | TE Code: AB2
Applicant: UPSHER SMITH LABORATORIES LLC
Approved: Sep 21, 2021 | RLD: No | RS: No | Type: RX